FAERS Safety Report 5394782-2 (Version None)
Quarter: 2007Q3

REPORT INFORMATION
  Report Type: 
  Country: None (occurrence: None)
  Receive Date: 20070723
  Receipt Date: 20070712
  Transmission Date: 20080115
  Serious: Yes (Death, Life-Threatening)
  Sender: FDA-Public Use
  Company Number: US-PFIZER INC-2007058105

PATIENT
  Sex: Male
  Weight: 170.1 kg

DRUGS (1)
  1. CELEBREX [Suspect]
     Indication: ARTHRITIS
     Dosage: TEXT:2 DOSES PER DAY

REACTIONS (1)
  - PULMONARY EMBOLISM [None]
